FAERS Safety Report 22364542 (Version 2)
Quarter: 2023Q2

REPORT INFORMATION
  Report Type: Other
  Country: IN (occurrence: None)
  Receive Date: 20230525
  Receipt Date: 20230614
  Transmission Date: 20230722
  Serious: Yes (Hospitalization, Other)
  Sender: FDA-Public Use
  Company Number: IN-ROCHE-3184237

PATIENT
  Age: 53 Year
  Sex: Female

DRUGS (1)
  1. PERJETA [Suspect]
     Active Substance: PERTUZUMAB
     Indication: Breast cancer metastatic
     Route: 042
     Dates: start: 20210416

REACTIONS (9)
  - Urinary tract infection [Unknown]
  - Toothache [Unknown]
  - Off label use [Unknown]
  - Hyperchlorhydria [Unknown]
  - Pain in extremity [Unknown]
  - Fall [Unknown]
  - Fracture [Recovering/Resolving]
  - Gait inability [Unknown]
  - Hip fracture [Unknown]

NARRATIVE: CASE EVENT DATE: 20230422
